FAERS Safety Report 5016007-X (Version None)
Quarter: 2006Q2

REPORT INFORMATION
  Report Type: 
  Country: None (occurrence: None)
  Receive Date: 20060531
  Receipt Date: 20060531
  Transmission Date: 20061013
  Serious: Yes (Life-Threatening, Other)
  Sender: FDA-Public Use
  Company Number: None

PATIENT
  Sex: Male

DRUGS (2)
  1. OMNISCAN [Suspect]
     Indication: RENAL ARTERY STENOSIS
  2. OPTIMARK [Suspect]
     Indication: CEREBROVASCULAR DISORDER

REACTIONS (1)
  - NEPHROGENIC FIBROSING DERMOPATHY [None]
